FAERS Safety Report 10311547 (Version 2)
Quarter: 2015Q2

REPORT INFORMATION
  Report Type: Spontaneous
  Country: US (occurrence: US)
  Receive Date: 20140717
  Receipt Date: 20150424
  Transmission Date: 20150821
  Serious: Yes (Other)
  Sender: FDA-Public Use
  Company Number: US-GLAXOSMITHKLINE-A1081280A

PATIENT
  Sex: Male

DRUGS (1)
  1. ADVAIR HFA [Suspect]
     Active Substance: FLUTICASONE PROPIONATE\SALMETEROL XINAFOATE
     Indication: DYSPNOEA
     Dosage: UNK, U
     Route: 065
     Dates: start: 20051214

REACTIONS (5)
  - Malaise [Unknown]
  - Dyspnoea [Unknown]
  - Dementia [Not Recovered/Not Resolved]
  - Sepsis [Unknown]
  - Micturition disorder [Unknown]
